FAERS Safety Report 10241751 (Version 3)
Quarter: 2014Q2

REPORT INFORMATION
  Report Type: Report from Study
  Country: US (occurrence: US)
  Receive Date: 20140617
  Receipt Date: 20140620
  Transmission Date: 20141212
  Serious: Yes (Death, Hospitalization, Other)
  Sender: FDA-Public Use
  Company Number: US-ACTELION-A-US2012-70154

PATIENT
  Age: 51 Year
  Sex: Male

DRUGS (5)
  1. VELETRI [Suspect]
     Indication: PULMONARY ARTERIAL HYPERTENSION
     Dosage: 13 NG/KG, PER MIN
     Route: 042
     Dates: start: 20120724, end: 20140603
  2. VENTAVIS [Concomitant]
     Dosage: UNK
     Route: 055
     Dates: start: 200507, end: 201111
  3. ADCIRCA [Concomitant]
     Dosage: 40 MG, UNK
  4. CIALIS [Concomitant]
  5. REVATIO [Concomitant]

REACTIONS (13)
  - Right ventricular failure [Fatal]
  - Disease progression [Fatal]
  - Cardio-respiratory arrest [Fatal]
  - Synovial cyst [Unknown]
  - Nausea [Unknown]
  - Vomiting [Unknown]
  - Fluid overload [Unknown]
  - Pulmonary hypertension [Recovering/Resolving]
  - Dyspnoea [Recovering/Resolving]
  - Peripheral swelling [Recovering/Resolving]
  - Dilatation ventricular [Recovering/Resolving]
  - Oedema [Unknown]
  - Headache [Recovering/Resolving]
